FAERS Safety Report 18666247 (Version 4)
Quarter: 2021Q1

REPORT INFORMATION
  Report Type: Report from Study
  Country: FR (occurrence: FR)
  Receive Date: 20201226
  Receipt Date: 20210303
  Transmission Date: 20210419
  Serious: Yes (Hospitalization)
  Sender: FDA-Public Use
  Company Number: NVSC2020FR324858

PATIENT
  Age: 9 Month
  Sex: Male
  Weight: 7.58 kg

DRUGS (3)
  1. ZOLGENSMA [Suspect]
     Active Substance: ONASEMNOGENE ABEPARVOVEC-XIOI
     Dosage: 8.3 ML, ONCE/SINGLE (7.2 X 1014 GENOME VECTOR COPIES)
     Route: 042
     Dates: start: 20201119, end: 20201119
  2. ZOLGENSMA [Suspect]
     Active Substance: ONASEMNOGENE ABEPARVOVEC-XIOI
     Indication: SPINAL MUSCULAR ATROPHY
     Dosage: 5.5 ML, ONCE/SINGLE (7.2 X 1014 GENOME VECTOR COPIES)
     Route: 042
     Dates: start: 20201119, end: 20201119
  3. PREVNAR 13 [Suspect]
     Active Substance: PNEUMOCOCCAL 13-VALENT CONJUGATE VACCINE
     Indication: IMMUNISATION
     Dosage: UNK
     Route: 065
     Dates: start: 20210204

REACTIONS (12)
  - Obstructive airways disorder [Recovering/Resolving]
  - Fatigue [Unknown]
  - Aspartate aminotransferase increased [Recovered/Resolved]
  - Aspartate aminotransferase increased [Recovered/Resolved]
  - Pyrexia [Recovered/Resolved]
  - Cough [Recovering/Resolving]
  - Transaminases increased [Unknown]
  - Alanine aminotransferase increased [Recovered/Resolved]
  - Ear infection [Unknown]
  - Pyrexia [Unknown]
  - Feeding disorder [Unknown]
  - Pyrexia [Recovered/Resolved]

NARRATIVE: CASE EVENT DATE: 20201121
